FAERS Safety Report 12354879 (Version 3)
Quarter: 2017Q2

REPORT INFORMATION
  Report Type: Spontaneous
  Country: DK (occurrence: DK)
  Receive Date: 20160511
  Receipt Date: 20170530
  Transmission Date: 20170830
  Serious: Yes (Hospitalization, Disabling, Other)
  Sender: FDA-Public Use
  Company Number: DK-ELI_LILLY_AND_COMPANY-DK201605000232

PATIENT
  Age: 74 Year
  Sex: Male

DRUGS (2)
  1. CISPLATIN. [Suspect]
     Active Substance: CISPLATIN
     Indication: BLADDER CANCER
     Dosage: UNK UNK, UNKNOWN
     Route: 065
     Dates: start: 20110620, end: 20110823
  2. GEMZAR [Suspect]
     Active Substance: GEMCITABINE HYDROCHLORIDE
     Indication: BLADDER CANCER
     Dosage: UNK
     Dates: start: 20110620, end: 20110823

REACTIONS (19)
  - Fall [Not Recovered/Not Resolved]
  - Fall [Not Recovered/Not Resolved]
  - Fatigue [Not Recovered/Not Resolved]
  - Abdominal pain [Recovered/Resolved]
  - Balance disorder [Not Recovered/Not Resolved]
  - Loss of control of legs [Unknown]
  - Neuralgia [Unknown]
  - Neurological symptom [Not Recovered/Not Resolved]
  - Night sweats [Recovering/Resolving]
  - Penis disorder [Recovered/Resolved]
  - Nerve injury [Unknown]
  - Coordination abnormal [Not Recovered/Not Resolved]
  - Multiple fractures [Unknown]
  - Face injury [Recovered/Resolved]
  - Musculoskeletal pain [Not Recovered/Not Resolved]
  - Discomfort [Unknown]
  - Pain in extremity [Not Recovered/Not Resolved]
  - Gait disturbance [Not Recovered/Not Resolved]
  - Dizziness [Unknown]

NARRATIVE: CASE EVENT DATE: 2011
